FAERS Safety Report 6322725-3 (Version None)
Quarter: 2009Q3

REPORT INFORMATION
  Report Type: 
  Country: None (occurrence: None)
  Receive Date: 20090824
  Receipt Date: 20090812
  Transmission Date: 20100115
  Serious: Yes (Other)
  Sender: FDA-Public Use
  Company Number: CH-WYE-G04230809

PATIENT
  Age: 36 Year
  Sex: Female

DRUGS (2)
  1. EFFEXOR [Suspect]
     Indication: OBSESSIVE-COMPULSIVE DISORDER
     Dosage: STARTED LONG TIME AGO, CYCLIC FREQUENCY.THEN DOSE WAS REDUCED TO 18.75 MG DAILY
     Route: 048
  2. EFFEXOR [Suspect]
     Indication: ANXIETY DISORDER

REACTIONS (4)
  - DRUG EXPOSURE DURING PREGNANCY [None]
  - FAILED INDUCTION OF LABOUR [None]
  - PRE-ECLAMPSIA [None]
  - PREGNANCY INDUCED HYPERTENSION [None]
